FAERS Safety Report 8561067-2 (Version None)
Quarter: 2012Q3

REPORT INFORMATION
  Report Type: 
  Country: None (occurrence: None)
  Receive Date: 20120802
  Receipt Date: 20120314
  Transmission Date: 20120928
  Serious: No
  Sender: FDA-Public Use
  Company Number: US-BRISTOL-MYERS SQUIBB COMPANY-16372476

PATIENT
  Age: 44 Year
  Sex: Female
  Weight: 82 kg

DRUGS (1)
  1. REYATAZ [Suspect]
     Indication: HIV INFECTION
     Dosage: 1DF:1CAPS

REACTIONS (2)
  - TREATMENT NONCOMPLIANCE [None]
  - PRODUCT FORMULATION ISSUE [None]
